FAERS Safety Report 13349714 (Version 1)
Quarter: 2017Q1

REPORT INFORMATION
  Report Type: Spontaneous
  Country: US (occurrence: US)
  Receive Date: 20170318
  Receipt Date: 20170318
  Transmission Date: 20170429
  Serious: Yes (Hospitalization, Other)
  Sender: FDA-Public Use
  Company Number: None

PATIENT
  Age: 52 Year
  Sex: Male
  Weight: 112.5 kg

DRUGS (7)
  1. PANTAPRAZOLE [Concomitant]
     Active Substance: PANTOPRAZOLE SODIUM
  2. LISINIPRIL HYDROCHLORATHIZIDE [Concomitant]
  3. PROCHLORPERAZINE. [Concomitant]
     Active Substance: PROCHLORPERAZINE
  4. STIVARGA [Suspect]
     Active Substance: REGORAFENIB
     Indication: GASTROINTESTINAL STROMAL TUMOUR
     Dosage: ?          QUANTITY:4 TABLET(S);?
     Route: 048
  5. AMLODIPINE BESYLATE. [Concomitant]
     Active Substance: AMLODIPINE BESYLATE
  6. CLONAZEPAM. [Concomitant]
     Active Substance: CLONAZEPAM
  7. STIVARGA [Suspect]
     Active Substance: REGORAFENIB
     Indication: METASTASIS
     Dosage: ?          QUANTITY:4 TABLET(S);?
     Route: 048

REACTIONS (12)
  - Confusional state [None]
  - Fatigue [None]
  - Hair colour changes [None]
  - Condition aggravated [None]
  - Alopecia [None]
  - Decreased appetite [None]
  - Pain [None]
  - Gastrointestinal stromal tumour [None]
  - Abdominal pain [None]
  - Drug ineffective [None]
  - Weight decreased [None]
  - Temperature regulation disorder [None]
